FAERS Safety Report 19862001 (Version 1)
Quarter: 2021Q3

REPORT INFORMATION
  Report Type: Other
  Country: US (occurrence: US)
  Receive Date: 20210920
  Receipt Date: 20210920
  Transmission Date: 20211014
  Serious: Yes (Hospitalization, Other)
  Sender: FDA-Public Use
  Company Number: US-ROCHE-2910816

PATIENT
  Age: 43 Year
  Sex: Female

DRUGS (6)
  1. CYANOCOBALAMIN. [Concomitant]
     Active Substance: CYANOCOBALAMIN
     Route: 048
  2. NEURONTIN [Concomitant]
     Active Substance: GABAPENTIN
     Dosage: (400?800)
     Route: 048
  3. VYVANSE [Concomitant]
     Active Substance: LISDEXAMFETAMINE DIMESYLATE
     Route: 048
  4. DRISDOL [Concomitant]
     Active Substance: ERGOCALCIFEROL
     Dosage: EACH WEEK ON WEDNESDAY MORNING
     Route: 048
  5. OCREVUS [Suspect]
     Active Substance: OCRELIZUMAB
     Indication: RELAPSING MULTIPLE SCLEROSIS
     Route: 042
  6. DITROPAN XL [Concomitant]
     Active Substance: OXYBUTYNIN CHLORIDE
     Route: 048

REACTIONS (4)
  - Uhthoff^s phenomenon [Unknown]
  - Multiple sclerosis [Unknown]
  - Urinary tract infection [Unknown]
  - Treatment failure [Unknown]

NARRATIVE: CASE EVENT DATE: 20210812
